FAERS Safety Report 22772403 (Version 8)
Quarter: 2023Q4

REPORT INFORMATION
  Report Type: Report from Study
  Country: US (occurrence: US)
  Receive Date: 20230801
  Receipt Date: 20231110
  Transmission Date: 20240110
  Serious: No
  Sender: FDA-Public Use
  Company Number: US-002147023-NVSC2023US167931

PATIENT
  Age: 56 Year
  Sex: Female

DRUGS (4)
  1. VIJOICE [Suspect]
     Active Substance: ALPELISIB
     Indication: PIK3CA related overgrowth spectrum
     Dosage: 250 MG, QD
     Route: 065
     Dates: start: 20230709
  2. VIJOICE [Suspect]
     Active Substance: ALPELISIB
     Dosage: UNK
     Route: 065
  3. VIJOICE [Suspect]
     Active Substance: ALPELISIB
     Dosage: 125 MG, QD
     Route: 048
     Dates: start: 20230711
  4. VIJOICE [Suspect]
     Active Substance: ALPELISIB
     Dosage: 50 MG
     Route: 065

REACTIONS (23)
  - Hypersensitivity [Unknown]
  - Urticaria [Unknown]
  - Wheezing [Unknown]
  - Discomfort [Unknown]
  - Pruritus [Unknown]
  - Rash erythematous [Unknown]
  - Flushing [Unknown]
  - Headache [Unknown]
  - Heart rate increased [Unknown]
  - Rash [Recovered/Resolved]
  - Erythema [Unknown]
  - Malaise [Unknown]
  - Prescribed underdose [Unknown]
  - Nausea [Unknown]
  - Somnolence [Unknown]
  - Poor quality sleep [Unknown]
  - Central nervous system lesion [Unknown]
  - Pain [Unknown]
  - Muscular weakness [Unknown]
  - Muscle atrophy [Unknown]
  - Wound [Unknown]
  - Pyrexia [Unknown]
  - Chills [Unknown]

NARRATIVE: CASE EVENT DATE: 20231001
